FAERS Safety Report 4949815-1 (Version None)
Quarter: 2006Q1

REPORT INFORMATION
  Report Type: 
  Country: None (occurrence: None)
  Receive Date: 20060315
  Receipt Date: 20060308
  Transmission Date: 20060701
  Serious: Yes (Death, Life-Threatening, Hospitalization)
  Sender: FDA-Public Use
  Company Number: FRWYE202115NOV04

PATIENT
  Age: 64 Year
  Sex: Male

DRUGS (6)
  1. GEMTUZUMAB OZOGAMICIN (GEMTUZUMAB OZOGAMICIN, INJECTION) [Suspect]
     Indication: ACUTE MYELOID LEUKAEMIA
     Dosage: 9 MG/M^2 1X PER 1 DAY; INTRAVENOUS
     Route: 042
     Dates: start: 20041006, end: 20041006
  2. GEMTUZUMAB OZOGAMICIN (GEMTUZUMAB OZOGAMICIN, INJECTION) [Suspect]
     Indication: ACUTE MYELOID LEUKAEMIA
     Dosage: 9 MG/M^2 1X PER 1 DAY; INTRAVENOUS
     Route: 042
     Dates: start: 20041020, end: 20041020
  3. AZACTAM [Concomitant]
  4. AMIKIN [Concomitant]
  5. OMEPRAZOLE [Concomitant]
  6. FLUCONAZOLE [Concomitant]

REACTIONS (2)
  - LOSS OF CONSCIOUSNESS [None]
  - VENOOCCLUSIVE LIVER DISEASE [None]
